FAERS Safety Report 13819806 (Version 1)
Quarter: 2017Q3

REPORT INFORMATION
  Report Type: Report from Study
  Country: US (occurrence: US)
  Receive Date: 20170731
  Receipt Date: 20170731
  Transmission Date: 20171127
  Serious: No
  Sender: FDA-Public Use
  Company Number: US-AMGEN-USASL2017112626

PATIENT
  Age: 9 Year
  Sex: Male

DRUGS (2)
  1. ENBREL [Suspect]
     Active Substance: ETANERCEPT
     Indication: JUVENILE IDIOPATHIC ARTHRITIS
     Dosage: UNK
     Route: 065
  2. ENBREL [Suspect]
     Active Substance: ETANERCEPT
     Dosage: 0.8 ML, QWK
     Route: 065
     Dates: start: 20170725

REACTIONS (3)
  - Vomiting [Unknown]
  - Malaise [Unknown]
  - Blood glucose abnormal [Recovered/Resolved]
